FAERS Safety Report 8461501-2 (Version None)
Quarter: 2012Q2

REPORT INFORMATION
  Report Type: 
  Country: None (occurrence: None)
  Receive Date: 20120619
  Receipt Date: 20120619
  Transmission Date: 20120825
  Serious: Yes (Other)
  Sender: FDA-Public Use
  Company Number: None

PATIENT
  Sex: Male

DRUGS (1)
  1. RANEXA [Suspect]
     Indication: CHEST PAIN
     Dosage: 1000MG BID ORAL
     Route: 048
     Dates: start: 20120523, end: 20120618

REACTIONS (1)
  - CHEST PAIN [None]
